FAERS Safety Report 5040187-3 (Version None)
Quarter: 2006Q2

REPORT INFORMATION
  Report Type: 
  Country: None (occurrence: None)
  Receive Date: 20060630
  Receipt Date: 20060620
  Transmission Date: 20061013
  Serious: Yes (Disabling)
  Sender: FDA-Public Use
  Company Number: 2006GB01053

PATIENT
  Age: 43 Year
  Sex: Male

DRUGS (5)
  1. SEROQUEL [Suspect]
     Indication: ANXIETY
     Route: 048
     Dates: start: 20051114, end: 20060427
  2. SEROQUEL [Suspect]
     Indication: DEPRESSION
     Route: 048
     Dates: start: 20051114, end: 20060427
  3. SEROQUEL [Suspect]
     Indication: LIBIDO INCREASED
     Route: 048
     Dates: start: 20051114, end: 20060427
  4. CO-DYDRAMOL [Concomitant]
     Indication: SHOULDER PAIN
     Dates: start: 20040101
  5. PROZAC [Concomitant]
     Route: 048
     Dates: start: 20051101

REACTIONS (1)
  - GENERALISED OEDEMA [None]
